FAERS Safety Report 24549966 (Version 1)
Quarter: 2024Q4

REPORT INFORMATION
  Report Type: Spontaneous
  Country: PT (occurrence: PT)
  Receive Date: 20241025
  Receipt Date: 20241025
  Transmission Date: 20250115
  Serious: Yes (Other)
  Sender: EXELIXIS
  Company Number: PT-INFARMED-J202410-132

PATIENT
  Age: 74 Year
  Sex: Male
  Weight: 63 kg

DRUGS (6)
  1. CABOMETYX [Suspect]
     Active Substance: CABOZANTINIB S-MALATE
     Indication: Clear cell renal cell carcinoma
     Dosage: 60 MG AND THEN 40MG
     Route: 048
     Dates: start: 20240326
  2. VINPOCETINE [Concomitant]
     Active Substance: VINPOCETINE
     Dosage: 5 MG
     Route: 048
  3. APIXABAN [Concomitant]
     Active Substance: APIXABAN
     Dosage: 5 MG
     Route: 048
  4. TROMALYT [Concomitant]
     Active Substance: ASPIRIN
     Dosage: MODIFIED RELEASE CAPSULE
     Route: 048
  5. METFORMIN [Concomitant]
     Active Substance: METFORMIN HYDROCHLORIDE
     Dosage: UNK
     Route: 048
  6. FENOFIBRATE\PRAVASTATIN [Concomitant]
     Active Substance: FENOFIBRATE\PRAVASTATIN
     Dosage: UNK
     Route: 048

REACTIONS (7)
  - Hepatotoxicity [Recovered/Resolved]
  - Vertigo [Recovered/Resolved]
  - Gastrointestinal toxicity [Recovered/Resolved]
  - Diarrhoea [Recovered/Resolved]
  - Vomiting [Recovered/Resolved]
  - Nausea [Recovered/Resolved]
  - Off label use [Unknown]

NARRATIVE: CASE EVENT DATE: 20240905
